FAERS Safety Report 8710416 (Version 3)
Quarter: 2012Q4

REPORT INFORMATION
  Report Type: 
  Country: JP (occurrence: JP)
  Receive Date: 20120807
  Receipt Date: 20120911
  Transmission Date: 20130627
  Serious: Yes (Other)
  Sender: FDA-Public Use
  Company Number: JP-MERCK-1208JPN000618

PATIENT

DRUGS (17)
  1. REFLEX [Suspect]
     Indication: DEPRESSION
     Dosage: 15 mg, qd
     Route: 048
     Dates: start: 20091118, end: 20091124
  2. REFLEX [Suspect]
     Dosage: 30 mg, qd
     Route: 048
     Dates: start: 20091125, end: 20100118
  3. REFLEX [Suspect]
     Dosage: 45 mg, qd
     Route: 048
     Dates: start: 20100119, end: 20100709
  4. REFLEX [Suspect]
     Dosage: 37.5 mg, qd
     Route: 048
     Dates: start: 20100710, end: 20100720
  5. REFLEX [Suspect]
     Dosage: 30 mg, qd
     Route: 048
     Dates: start: 20100721, end: 20100903
  6. REFLEX [Suspect]
     Dosage: 45 mg, qd
     Route: 048
     Dates: start: 20100904, end: 20110823
  7. REFLEX [Suspect]
     Dosage: 30 mg, qd
     Route: 048
     Dates: start: 20110824, end: 20110906
  8. REFLEX [Suspect]
     Dosage: 22.5 mg, qd
     Route: 048
     Dates: start: 20110907, end: 20120110
  9. REFLEX [Suspect]
     Dosage: 15 mg, qd
     Route: 048
     Dates: start: 20120111, end: 20120717
  10. CHLORPROMAZINE HYDROCHLORIDE [Suspect]
     Dosage: 50 mg, UNK
     Route: 048
     Dates: start: 20110824
  11. FLUNITRAZEPAM [Concomitant]
     Dosage: 2 mg, UNK
     Route: 048
     Dates: start: 20091118
  12. ESTAZOLAM [Concomitant]
     Dosage: 4 UNK, UNK
     Route: 048
     Dates: start: 20100303
  13. PREDNISOLONE [Concomitant]
     Indication: RENAL FAILURE CHRONIC
     Dosage: 5 mg, UNK
     Route: 048
  14. ALLOPURINOL [Concomitant]
     Indication: RENAL FAILURE CHRONIC
     Dosage: 100 mg, UNK
     Route: 048
  15. MYCOPHENOLATE MOFETIL [Concomitant]
     Indication: RENAL FAILURE CHRONIC
     Dosage: 1000 mg, UNK
     Route: 048
  16. PRAVASTATIN SODIUM [Concomitant]
     Indication: RENAL FAILURE CHRONIC
     Dosage: 10 mg, UNK
     Route: 048
  17. CYCLOSPORINE [Concomitant]
     Indication: RENAL FAILURE CHRONIC
     Dosage: 150 mg, UNK
     Route: 048

REACTIONS (1)
  - Convulsion [Recovered/Resolved]
